FAERS Safety Report 9775357 (Version 1)
Quarter: 2013Q4

REPORT INFORMATION
  Report Type: Spontaneous
  Country: US (occurrence: US)
  Receive Date: 20131220
  Receipt Date: 20131220
  Transmission Date: 20140711
  Serious: Yes (Other)
  Sender: FDA-Public Use
  Company Number: US-PFIZER INC-2013361392

PATIENT
  Age: 72 Year
  Sex: Male
  Weight: 102.49 kg

DRUGS (8)
  1. VIAGRA [Suspect]
     Dosage: 100 MG, AS NEEDED (TAKE 1 TAB BY MOUTH AS NEEDED)
     Route: 048
  2. COZAAR [Concomitant]
     Dosage: 100 MG, DAILY (TAKE 1 TAB BY MOUTH DAILY)
     Route: 048
  3. LOPRESSOR [Concomitant]
     Dosage: 100 MG, DAILY (TAKE 1 TAB BY MOUTH DAILY)
     Route: 048
  4. PLAVIX [Concomitant]
     Dosage: 75 MG, DAILY (TAKE 1 TAB BY MOUTH DAILY)
     Route: 048
  5. LASIX [Concomitant]
     Dosage: 40 MG, DAILY (DAILY TAKE 1 TAB BY MOUTH DAILY)
     Route: 048
  6. PRILOSEC [Concomitant]
     Dosage: 20 MG, DAILY DAILY (TAKE 1 CAP BY MOUTH DAILY)
     Route: 048
  7. ASPIRIN [Concomitant]
     Dosage: 81 MG, DAILY (TAKE 1 TAB BY MOUTH DAILY)
     Route: 048
  8. LORTAB [Concomitant]
     Indication: PAIN
     Dosage: 7.5-500 MG, EVERY 4 HRS (TAKE 1 TAB BY MOUTH EVERY 4 HOURS AS NEEDED)
     Route: 048

REACTIONS (4)
  - Osteoarthritis [Not Recovered/Not Resolved]
  - Fall [Unknown]
  - Hyperglycaemia [Not Recovered/Not Resolved]
  - Vision blurred [Unknown]
